FAERS Safety Report 10213451 (Version 1)
Quarter: 2014Q2

REPORT INFORMATION
  Report Type: Report from Study
  Country: GB (occurrence: GB)
  Receive Date: 20140603
  Receipt Date: 20140603
  Transmission Date: 20141212
  Serious: Yes (Hospitalization)
  Sender: FDA-Public Use
  Company Number: GB-ROCHE-1406339

PATIENT
  Sex: Male
  Weight: 11.6 kg

DRUGS (7)
  1. BEVACIZUMAB [Suspect]
     Indication: BRAIN NEOPLASM MALIGNANT
     Route: 042
     Dates: start: 20140501
  2. IRINOTECAN [Suspect]
     Indication: BRAIN NEOPLASM MALIGNANT
     Dosage: DATE OF LAST DOSE ADMINISTERED: 05/MAY/2014?LAST DOSE GIVEN: 130 MG
     Route: 042
     Dates: start: 20140501
  3. TEMOZOLOMIDE [Suspect]
     Indication: BRAIN NEOPLASM MALIGNANT
     Dosage: DATE OF LAST DOSE ADMINISTERED: 05/MAY/2014?LAST DOSE GIVEN: 275 MG
     Route: 048
     Dates: start: 20140501
  4. AMLODIPINE [Concomitant]
     Indication: BLOOD PRESSURE
     Route: 048
     Dates: start: 20140219
  5. CO-TRIMOXAZOLE [Concomitant]
     Indication: PROPHYLAXIS
     Route: 048
     Dates: start: 20140205
  6. PARACETAMOL [Concomitant]
     Indication: PAIN
     Route: 048
     Dates: start: 20140515
  7. ORAMORPH [Concomitant]
     Indication: PAIN
     Route: 048
     Dates: start: 20140515

REACTIONS (1)
  - Neuroblastoma [Recovered/Resolved]
